FAERS Safety Report 5443364-2 (Version None)
Quarter: 2007Q3

REPORT INFORMATION
  Report Type: 
  Country: None (occurrence: None)
  Receive Date: 20070905
  Receipt Date: 20070830
  Transmission Date: 20080115
  Serious: Yes (Life-Threatening, Hospitalization, Disabling, Other)
  Sender: FDA-Public Use
  Company Number: A0677793A

PATIENT
  Age: 59 Year
  Sex: Male

DRUGS (7)
  1. AVANDIA [Suspect]
     Dosage: 4MG PER DAY
     Route: 048
     Dates: start: 20061101, end: 20070701
  2. NPH ILETIN II [Concomitant]
  3. LANTUS [Concomitant]
  4. ASPIRIN [Concomitant]
  5. ATENOLOL [Concomitant]
  6. UNSPECIFIED MEDICATION [Concomitant]
  7. METFORMIN HCL [Concomitant]
     Dosage: 500MG PER DAY

REACTIONS (1)
  - MYOCARDIAL INFARCTION [None]
